FAERS Safety Report 25288415 (Version 1)
Quarter: 2025Q2

REPORT INFORMATION
  Report Type: Report from Study
  Country: CA (occurrence: CA)
  Receive Date: 20250509
  Receipt Date: 20250509
  Transmission Date: 20250717
  Serious: Yes (Death, Other)
  Sender: TOLMAR
  Company Number: TLM-2025-01315(0)

PATIENT
  Sex: Male

DRUGS (2)
  1. ELIGARD [Suspect]
     Active Substance: LEUPROLIDE ACETATE
     Indication: Prostate cancer
     Dosage: 45 MG, EVERY 6 MONTHS
     Route: 058
     Dates: start: 20241116
  2. ELIGARD [Suspect]
     Active Substance: LEUPROLIDE ACETATE
     Indication: Prostate cancer

REACTIONS (3)
  - Death [Fatal]
  - Metastasis [Unknown]
  - Malaise [Unknown]
